FAERS Safety Report 8547379-7 (Version None)
Quarter: 2012Q3

REPORT INFORMATION
  Report Type: 
  Country: None (occurrence: None)
  Receive Date: 20120727
  Receipt Date: 20120326
  Transmission Date: 20120928
  Serious: No
  Sender: FDA-Public Use
  Company Number: US-ASTRAZENECA-2012SE20261

PATIENT
  Age: 39 Year
  Sex: Female
  Weight: 79.4 kg

DRUGS (6)
  1. OTHER PRESCRIPTION [Concomitant]
     Indication: OESOPHAGEAL DISORDER
  2. AMBIEN [Suspect]
  3. LUNESTA [Suspect]
  4. SEROQUEL [Suspect]
     Indication: BIPOLAR DISORDER
     Route: 048
  5. SEROQUEL [Suspect]
     Indication: DEPRESSION
     Route: 048
  6. OTHER PRESCRIPTION [Concomitant]
     Indication: GASTRIC DISORDER

REACTIONS (4)
  - DRUG INEFFECTIVE [None]
  - INTENTIONAL DRUG MISUSE [None]
  - INSOMNIA [None]
  - MALAISE [None]
